FAERS Safety Report 7019638-0 (Version None)
Quarter: 2010Q3

REPORT INFORMATION
  Report Type: 
  Country: None (occurrence: None)
  Receive Date: 20100928
  Receipt Date: 20100928
  Transmission Date: 20110219
  Serious: No
  Sender: FDA-Public Use
  Company Number: None

PATIENT
  Age: 56 Year
  Sex: Female
  Weight: 78.9259 kg

DRUGS (1)
  1. LODINE [Suspect]
     Indication: INFLAMMATION
     Dosage: 400MG BID PO
     Route: 048
     Dates: start: 20100915, end: 20100922

REACTIONS (5)
  - INSOMNIA [None]
  - PRURITUS [None]
  - RASH [None]
  - SWELLING [None]
  - URTICARIA [None]
